FAERS Safety Report 11947374 (Version 1)
Quarter: 2016Q1

REPORT INFORMATION
  Report Type: Spontaneous
  Country: US (occurrence: US)
  Receive Date: 20160125
  Receipt Date: 20160125
  Transmission Date: 20160526
  Serious: No
  Sender: FDA-Public Use
  Company Number: US-JNJFOC-20151222151

PATIENT
  Age: 63 Year
  Sex: Female
  Weight: 76.2 kg

DRUGS (4)
  1. MENS ROGAINE EXTRA STRENGTH [Suspect]
     Active Substance: MINOXIDIL
     Route: 061
  2. BIOSIL [Concomitant]
     Indication: COLLAGEN DISORDER
     Route: 065
  3. MENS ROGAINE EXTRA STRENGTH [Suspect]
     Active Substance: MINOXIDIL
     Indication: ALOPECIA
     Dosage: STARTED 1 ML; TO 1/3 TO 1/2 OF THAT
     Route: 061
     Dates: end: 20151222
  4. ALL OTHER THERAPEUTIC PRODUCTS [Concomitant]
     Active Substance: UNSPECIFIED INGREDIENT
     Indication: PRODUCT USED FOR UNKNOWN INDICATION
     Route: 065

REACTIONS (4)
  - Hair colour changes [Unknown]
  - Product quality issue [Unknown]
  - Off label use [Unknown]
  - Wrong patient received medication [Unknown]
